FAERS Safety Report 4737754-0 (Version None)
Quarter: 2005Q3

REPORT INFORMATION
  Report Type: 
  Country: None (occurrence: None)
  Receive Date: 20050802
  Receipt Date: 20050720
  Transmission Date: 20060218
  Serious: Yes (Hospitalization)
  Sender: FDA-Public Use
  Company Number: WAES 0507USA03413

PATIENT
  Age: 72 Year
  Sex: Female

DRUGS (1)
  1. COZAAR [Suspect]
     Indication: HYPERTENSION
     Dosage: 25 MG/DAILY
     Route: 048
     Dates: start: 20020207, end: 20040824

REACTIONS (1)
  - FEMORAL NECK FRACTURE [None]
